FAERS Safety Report 5898216-0 (Version None)
Quarter: 2008Q3

REPORT INFORMATION
  Report Type: 
  Country: None (occurrence: None)
  Receive Date: 20080917
  Receipt Date: 20080715
  Transmission Date: 20090109
  Serious: Yes (Other)
  Sender: FDA-Public Use
  Company Number: 08-001144

PATIENT
  Age: 47 Year
  Sex: Female

DRUGS (1)
  1. SARAFEM [Suspect]
     Dosage: 2 TABLETS, QD, ORAL
     Route: 048

REACTIONS (3)
  - DYSGEUSIA [None]
  - PHARYNGEAL OEDEMA [None]
  - THROAT IRRITATION [None]
